FAERS Safety Report 6725948-4 (Version None)
Quarter: 2010Q2

REPORT INFORMATION
  Report Type: 
  Country: None (occurrence: None)
  Receive Date: 20100512
  Receipt Date: 20100430
  Transmission Date: 20101027
  Serious: Yes (Other)
  Sender: FDA-Public Use
  Company Number: 1000012959

PATIENT
  Age: 51 Year
  Sex: Female
  Weight: 85 kg

DRUGS (3)
  1. CITALOPRAM HYDROBROMIDE [Suspect]
     Indication: DEPRESSION
     Dosage: 20 MG (20 MG,1 IN 1 D),ORAL
     Route: 048
     Dates: start: 20090501, end: 20090601
  2. CITALOPRAM HYDROBROMIDE [Suspect]
     Indication: DEPRESSION
     Dosage: 20 MG (20 MG,1 IN 1 D),ORAL
     Route: 048
     Dates: start: 20100201, end: 20100309
  3. LEVOTHYROXINE SODIUM [Concomitant]

REACTIONS (2)
  - EPSTEIN-BARR VIRUS INFECTION [None]
  - SINUS BRADYCARDIA [None]
